FAERS Safety Report 23710344 (Version 1)
Quarter: 2024Q2

REPORT INFORMATION
  Report Type: Spontaneous
  Country: CN (occurrence: CN)
  Receive Date: 20240405
  Receipt Date: 20240405
  Transmission Date: 20240716
  Serious: Yes (Other)
  Sender: FDA-Public Use
  Company Number: CN-BEIGENE-BGN-2024-004863

PATIENT

DRUGS (5)
  1. TISLELIZUMAB [Suspect]
     Active Substance: TISLELIZUMAB
     Indication: Lung adenocarcinoma
     Dosage: 200 MILLIGRAM
     Route: 041
     Dates: start: 20240323, end: 20240323
  2. HERBALS [Suspect]
     Active Substance: HERBALS
     Indication: Supplementation therapy
     Dosage: 40 MILLILITER
     Route: 041
     Dates: start: 20240301, end: 20240323
  3. OMEPRAZOLE SODIUM [Suspect]
     Active Substance: OMEPRAZOLE SODIUM
     Indication: Prophylaxis
     Dosage: 40 MILLIGRAM
     Route: 041
     Dates: start: 20240311, end: 20240323
  4. SODIUM CHLORIDE [Concomitant]
     Active Substance: SODIUM CHLORIDE
     Indication: Vehicle solution use
     Dosage: 100 MILLILITER
     Dates: start: 20240311, end: 20240323
  5. DEXTROSE [Concomitant]
     Active Substance: DEXTROSE\DEXTROSE MONOHYDRATE
     Indication: Vehicle solution use
     Dosage: 250 MILLILITER
     Route: 041
     Dates: start: 20240301, end: 20240323

REACTIONS (1)
  - Anaphylactoid reaction [Recovering/Resolving]

NARRATIVE: CASE EVENT DATE: 20240324
